FAERS Safety Report 20643129 (Version 1)
Quarter: 2022Q1

REPORT INFORMATION
  Report Type: Spontaneous
  Country: US (occurrence: None)
  Receive Date: 20220325
  Receipt Date: 20220325
  Transmission Date: 20220424
  Serious: No
  Sender: FDA-Public Use
  Company Number: None

PATIENT
  Age: 60 Year
  Sex: Female
  Weight: 101.3 kg

DRUGS (2)
  1. EVUSHELD [Suspect]
     Active Substance: CILGAVIMAB\TIXAGEVIMAB
     Indication: Immunodeficiency
     Dosage: FREQUENCY : ONCE;?
     Route: 030
     Dates: start: 20220205, end: 20220322
  2. EVUSHELD [Suspect]
     Active Substance: CILGAVIMAB\TIXAGEVIMAB
     Indication: COVID-19

REACTIONS (1)
  - Incorrect dose administered [None]

NARRATIVE: CASE EVENT DATE: 20220322
